FAERS Safety Report 14307495 (Version 2)
Quarter: 2018Q1

REPORT INFORMATION
  Report Type: Spontaneous
  Country: US (occurrence: US)
  Receive Date: 20171220
  Receipt Date: 20180115
  Transmission Date: 20180509
  Serious: No
  Sender: FDA-Public Use
  Company Number: US-PFIZER INC-2017538861

PATIENT
  Sex: Female
  Weight: 82 kg

DRUGS (1)
  1. ATROPINE SULFATE/DIPHENOXYLATE HYDROCHLORIDE [Suspect]
     Active Substance: ATROPINE SULFATE\DIPHENOXYLATE HYDROCHLORIDE
     Indication: IRRITABLE BOWEL SYNDROME
     Dosage: 1 DF, AS NEEDED ([ATROPINE SULFATE 0.025MG, DIPHENOXYLATE HCL 2.5MG], 1 TABLET AS NEEDED)
     Route: 048

REACTIONS (3)
  - Product use issue [Unknown]
  - Drug dispensing error [Unknown]
  - Drug ineffective for unapproved indication [Not Recovered/Not Resolved]
